FAERS Safety Report 5832811-X (Version None)
Quarter: 2008Q3

REPORT INFORMATION
  Report Type: 
  Country: None (occurrence: None)
  Receive Date: 20080804
  Receipt Date: 20080723
  Transmission Date: 20090109
  Serious: Yes (Other)
  Sender: FDA-Public Use
  Company Number: FR-PFIZER INC-2008061998

PATIENT

DRUGS (1)
  1. GENOTONORM [Suspect]
     Indication: GROWTH RETARDATION

REACTIONS (1)
  - MYELODYSPLASTIC SYNDROME [None]
